FAERS Safety Report 23169891 (Version 3)
Quarter: 2024Q3

REPORT INFORMATION
  Report Type: Report from Study
  Country: IT (occurrence: IT)
  Receive Date: 20231110
  Receipt Date: 20240715
  Transmission Date: 20241016
  Serious: Yes (Other)
  Sender: TEVA
  Company Number: None

PATIENT
  Age: 14 Year
  Sex: Female
  Weight: 67 kg

DRUGS (6)
  1. VINCRISTINE [Suspect]
     Active Substance: VINCRISTINE
     Indication: Hodgkin^s disease
     Dosage: VINCRISTINE TEVA ITALY
     Route: 042
     Dates: start: 20231003, end: 20231003
  2. VINCRISTINE [Suspect]
     Active Substance: VINCRISTINE
     Indication: Hodgkin^s disease
     Dosage: 2 MG/DAY ON 19 AND 26/09/23, VINCRISTINE TEVA ITALY
     Route: 042
     Dates: start: 20230919, end: 20230926
  3. PREDNISONE [Concomitant]
     Active Substance: PREDNISONE
     Indication: Hodgkin^s disease
     Dosage: 35 MG X 3 TIMES/DAY (1 TABLET OF 25 MG + 2 TABLETS OF 5 MG)
     Route: 048
     Dates: start: 20230919, end: 20231004
  4. DOXORUBICIN HYDROCHLORIDE [Suspect]
     Active Substance: DOXORUBICIN HYDROCHLORIDE
     Indication: Hodgkin^s disease
     Dosage: DOXORUBICINA ACCORD HEALTHCARE ITALIA
     Route: 042
     Dates: start: 20230919, end: 20231003
  5. ETOPOSIDE [Suspect]
     Active Substance: ETOPOSIDE
     Indication: Hodgkin^s disease
     Dosage: ETOPOSIDE SANDAZ
     Route: 042
     Dates: start: 20230919, end: 20230926
  6. LANSOPRAZOLE [Concomitant]
     Active Substance: LANSOPRAZOLE
     Indication: Prophylaxis against gastrointestinal ulcer
     Route: 048
     Dates: start: 20230919, end: 20231005

REACTIONS (4)
  - Leukopenia [Recovered/Resolved]
  - Anaemia [Recovered/Resolved]
  - Neutropenia [Recovered/Resolved]
  - Alopecia [Recovered/Resolved]

NARRATIVE: CASE EVENT DATE: 20231003
